FAERS Safety Report 24772344 (Version 7)
Quarter: 2025Q3

REPORT INFORMATION
  Report Type: Spontaneous
  Country: US (occurrence: US)
  Receive Date: 20241224
  Receipt Date: 20250903
  Transmission Date: 20251021
  Serious: Yes (Other)
  Sender: PFIZER
  Company Number: US-PFIZER INC-PV202400167413

PATIENT
  Age: 67 Year
  Sex: Female

DRUGS (4)
  1. TUKYSA [Suspect]
     Active Substance: TUCATINIB
     Dosage: 150MG; 1 TABLET TWICE DAILY
     Route: 048
  2. TUKYSA [Suspect]
     Active Substance: TUCATINIB
     Dosage: 50MG; 2 TABLETS TWICE DAILY
  3. TUKYSA [Suspect]
     Active Substance: TUCATINIB
     Dosage: 250MG BID (2 TAB TWICE DAILY)/ 150MG; 1 TABLET TWICE A DAY. TUKYSA 50MG; 2 TABLETS TWICE A DAY
     Route: 048
  4. TUKYSA [Suspect]
     Active Substance: TUCATINIB

REACTIONS (3)
  - Illness [Unknown]
  - Off label use [Unknown]
  - Off label use [Unknown]
